FAERS Safety Report 14934658 (Version 2)
Quarter: 2018Q4

REPORT INFORMATION
  Report Type: Spontaneous
  Country: GR (occurrence: GR)
  Receive Date: 20180524
  Receipt Date: 20181008
  Transmission Date: 20190204
  Serious: Yes (Life-Threatening)
  Sender: FDA-Public Use
  Company Number: GR-OTSUKA-2018_012226

PATIENT
  Age: 46 Year
  Sex: Female
  Weight: 78 kg

DRUGS (12)
  1. ABILIFY [Suspect]
     Active Substance: ARIPIPRAZOLE
     Indication: STRESS
  2. ABILIFY MAINTENA [Suspect]
     Active Substance: ARIPIPRAZOLE
     Indication: EMOTIONAL DISORDER
     Dosage: 1 DF, PER 15 DAYS
     Route: 030
  3. ZYPADHERA [Suspect]
     Active Substance: OLANZAPINE PAMOATE
     Indication: STRESS
  4. ZYPREXA [Suspect]
     Active Substance: OLANZAPINE
     Indication: STRESS
  5. ALOPERIDIN [Suspect]
     Active Substance: HALOPERIDOL
     Indication: EMOTIONAL DISORDER
     Dosage: 1 DF, QD
     Route: 048
  6. ABILIFY [Suspect]
     Active Substance: ARIPIPRAZOLE
     Indication: EMOTIONAL DISORDER
     Dosage: 1 DF, QD
     Route: 048
  7. ZYPADHERA [Suspect]
     Active Substance: OLANZAPINE PAMOATE
     Indication: EMOTIONAL DISORDER
     Dosage: 1 DF, PER 15 DAY
     Route: 030
  8. ALOPERIDIN [Suspect]
     Active Substance: HALOPERIDOL
     Indication: STRESS
  9. AKINETON [Concomitant]
     Active Substance: BIPERIDEN HYDROCHLORIDE
     Indication: STRESS
     Dosage: 1 DF, QD (DRUG REPEATED IN R2)
     Route: 048
  10. ABILIFY MAINTENA [Suspect]
     Active Substance: ARIPIPRAZOLE
     Indication: STRESS
  11. AKINETON [Concomitant]
     Active Substance: BIPERIDEN HYDROCHLORIDE
     Indication: EMOTIONAL DISORDER
     Dosage: 1 DF, QD
     Route: 048
     Dates: end: 20180201
  12. ZYPREXA [Suspect]
     Active Substance: OLANZAPINE
     Indication: EMOTIONAL DISORDER
     Dosage: 1 DF, UNK
     Route: 048

REACTIONS (19)
  - Peripheral swelling [Unknown]
  - Alopecia [Unknown]
  - Disorientation [Unknown]
  - Gambling disorder [Unknown]
  - Amnesia [Not Recovered/Not Resolved]
  - Somnolence [Not Recovered/Not Resolved]
  - Asthenia [Unknown]
  - Stress [Not Recovered/Not Resolved]
  - Swelling [Unknown]
  - Epistaxis [Unknown]
  - Speech disorder [Unknown]
  - Confusional state [Not Recovered/Not Resolved]
  - Appetite disorder [Unknown]
  - Aggression [Unknown]
  - Product use in unapproved indication [Unknown]
  - Incorrect product administration duration [Unknown]
  - Weight increased [Not Recovered/Not Resolved]
  - Musculoskeletal stiffness [Not Recovered/Not Resolved]
  - Fatigue [Not Recovered/Not Resolved]

NARRATIVE: CASE EVENT DATE: 20071201
